FAERS Safety Report 20573871 (Version 4)
Quarter: 2022Q2

REPORT INFORMATION
  Report Type: Spontaneous
  Country: US (occurrence: US)
  Receive Date: 20220309
  Receipt Date: 20220630
  Transmission Date: 20220720
  Serious: Yes (Death, Life-Threatening, Hospitalization, Other)
  Sender: FDA-Public Use
  Company Number: US-GILEAD-2022-0572892

PATIENT
  Age: 63 Year
  Sex: Male
  Weight: 65.7 kg

DRUGS (77)
  1. TECARTUS [Suspect]
     Active Substance: BREXUCABTAGENE AUTOLEUCEL
     Indication: Mantle cell lymphoma refractory
     Dosage: 68 2X10^8 AUTOLOGOUS ANTI CD19 CAR T CELLS IN 5% DSMO
     Route: 042
     Dates: start: 20220207, end: 20220207
  2. FLUDARABINE [Concomitant]
     Active Substance: FLUDARABINE PHOSPHATE
     Dosage: UNK
     Dates: start: 20220202, end: 20220202
  3. CYCLOPHOSPHAMIDE [Concomitant]
     Active Substance: CYCLOPHOSPHAMIDE
     Dosage: UNK
     Dates: start: 20220202, end: 20220202
  4. DIPHENHYDRAMINE [Concomitant]
     Active Substance: DIPHENHYDRAMINE
     Dosage: UNK
     Dates: start: 20220207
  5. ACETAMINOPHEN [Concomitant]
     Active Substance: ACETAMINOPHEN
     Dosage: UNK
     Dates: start: 20220207
  6. SODIUM CHLORIDE [Concomitant]
     Active Substance: SODIUM CHLORIDE
     Dosage: UNK
     Dates: start: 20220202, end: 20220204
  7. SODIUM CHLORIDE [Concomitant]
     Active Substance: SODIUM CHLORIDE
     Dosage: UNK
     Dates: start: 20220215, end: 20220215
  8. SODIUM CHLORIDE [Concomitant]
     Active Substance: SODIUM CHLORIDE
     Dosage: UNK
     Dates: start: 20220209
  9. OLANZAPINE [Concomitant]
     Active Substance: OLANZAPINE
     Dosage: UNK
     Dates: start: 20220202, end: 20220204
  10. OLANZAPINE [Concomitant]
     Active Substance: OLANZAPINE
     Dosage: UNK
     Dates: start: 20220113, end: 20220124
  11. HEPARIN [Concomitant]
     Active Substance: HEPARIN SODIUM
     Dosage: UNK
     Dates: start: 20220202, end: 20220204
  12. ONDANSETRON [Concomitant]
     Active Substance: ONDANSETRON
     Dosage: UNK
     Dates: start: 20220202, end: 20220204
  13. ONDANSETRON [Concomitant]
     Active Substance: ONDANSETRON
     Dosage: UNK
     Dates: start: 20220207
  14. VALSARTAN [Concomitant]
     Active Substance: VALSARTAN
     Dosage: UNK
     Dates: start: 20211230
  15. VALSARTAN [Concomitant]
     Active Substance: VALSARTAN
     Dosage: UNK
     Dates: start: 20220207
  16. CARVEDILOL [Concomitant]
     Active Substance: CARVEDILOL
     Dosage: UNK
     Dates: start: 20211213
  17. CARVEDILOL [Concomitant]
     Active Substance: CARVEDILOL
     Dosage: UNK
     Dates: start: 20220207
  18. TRIAMCINOLONE [Concomitant]
     Active Substance: TRIAMCINOLONE
  19. VALACYCLOVIR [Concomitant]
     Active Substance: VALACYCLOVIR HYDROCHLORIDE
  20. LEVOTHYROXINE [Concomitant]
     Active Substance: LEVOTHYROXINE
     Dosage: UNK
     Dates: start: 20220208
  21. TOBRAMYCIN [Concomitant]
     Active Substance: TOBRAMYCIN
     Dosage: UNK
     Dates: start: 20220215
  22. VANCOMYCIN [Concomitant]
     Active Substance: VANCOMYCIN
     Dosage: UNK
     Dates: start: 20220207
  23. VANCOMYCIN [Concomitant]
     Active Substance: VANCOMYCIN
     Dosage: UNK
     Dates: start: 20220215
  24. LACTATED RINGERS SOLUTION [Concomitant]
     Active Substance: CALCIUM CHLORIDE\POTASSIUM CHLORIDE\SODIUM CHLORIDE\SODIUM LACTATE
     Dosage: UNK
     Dates: start: 20220215, end: 20220215
  25. DEXTROMETHORPHAN\GUAIFENESIN [Concomitant]
     Active Substance: DEXTROMETHORPHAN\GUAIFENESIN
     Dosage: UNK
     Dates: start: 20220215
  26. HYPROMELLOSES [Concomitant]
     Active Substance: HYPROMELLOSES
     Dosage: UNK
     Dates: start: 20220214
  27. DEXAMETHASONE [Concomitant]
     Active Substance: DEXAMETHASONE
     Dosage: UNK
     Dates: start: 20220211, end: 20220213
  28. FLOMAX [Concomitant]
     Active Substance: TAMSULOSIN HYDROCHLORIDE
     Dosage: UNK
     Dates: start: 20220212
  29. CIPROFLOXACIN [Concomitant]
     Active Substance: CIPROFLOXACIN
     Dosage: UNK
     Dates: start: 20220207, end: 20220227
  30. SODIUM CHLORIDE [Concomitant]
     Active Substance: SODIUM CHLORIDE
     Dosage: UNK
     Dates: start: 20220207
  31. FLUCONAZOLE [Concomitant]
     Active Substance: FLUCONAZOLE
     Dosage: UNK
     Dates: start: 20220207, end: 20220317
  32. ACYCLOVIR [Concomitant]
     Active Substance: ACYCLOVIR
     Dosage: UNK
     Dates: start: 20220207
  33. ALLOPURINOL [Concomitant]
     Active Substance: ALLOPURINOL
     Dosage: UNK
     Dates: start: 20220113
  34. LEVETIRACETAM [Concomitant]
     Active Substance: LEVETIRACETAM
     Dosage: UNK
     Dates: start: 20220207
  35. ALTEPLASE [Concomitant]
     Active Substance: ALTEPLASE
     Dosage: UNK
     Dates: start: 20220207
  36. PROCHLORPERAZINE [Concomitant]
     Active Substance: PROCHLORPERAZINE
     Dosage: UNK
     Dates: start: 20220207
  37. MAALOX PLUS [ALUMINIUM HYDROXIDE;DIMETICONE;MAGNESIUM HYDROXIDE] [Concomitant]
     Dosage: UNK
     Dates: start: 20220207
  38. MAGNESIUM SULFATE [Concomitant]
     Active Substance: MAGNESIUM SULFATE
     Dosage: UNK
     Dates: start: 20220210, end: 20220210
  39. POTASSIUM CHLORIDE [Concomitant]
     Active Substance: POTASSIUM CHLORIDE
     Dosage: UNK
     Dates: start: 20220208, end: 20220208
  40. FUROSEMIDE [Concomitant]
     Active Substance: FUROSEMIDE
     Dosage: UNK
     Dates: start: 20220204, end: 20220204
  41. FOSAPREPITANT [Concomitant]
     Active Substance: FOSAPREPITANT
     Dosage: UNK
     Dates: start: 20220202, end: 20220202
  42. VASOPRESSIN [Concomitant]
     Active Substance: VASOPRESSIN
  43. CALCIUM CHLORIDE [Concomitant]
     Active Substance: CALCIUM CHLORIDE
  44. AMIODARONE [Concomitant]
     Active Substance: AMIODARONE
  45. NOREPINEPHRINE [Concomitant]
     Active Substance: NOREPINEPHRINE
  46. MIDAZOLAM [Concomitant]
     Active Substance: MIDAZOLAM
  47. LACOSAMIDE [Concomitant]
     Active Substance: LACOSAMIDE
  48. MORPHINE [Concomitant]
     Active Substance: MORPHINE
  49. GLYCOPYRROLATE [Concomitant]
     Active Substance: GLYCOPYRROLATE
  50. LORAZEPAM [Concomitant]
     Active Substance: LORAZEPAM
  51. SCOPOLAMINE [Concomitant]
     Active Substance: SCOPOLAMINE
  52. SEVELAMER [Concomitant]
     Active Substance: SEVELAMER
  53. CLONAZEPAM [Concomitant]
     Active Substance: CLONAZEPAM
  54. SODIUM CITRATE [Concomitant]
     Active Substance: SODIUM CITRATE
  55. SENNOSIDES A AND B [Concomitant]
     Active Substance: SENNOSIDES A AND B
  56. DOCUSATE [Concomitant]
     Active Substance: DOCUSATE
  57. METOPROLOL [Concomitant]
     Active Substance: METOPROLOL
  58. ACETYLCYSTEINE [Concomitant]
     Active Substance: ACETYLCYSTEINE
  59. METHYLPREDNISOLONE [Concomitant]
     Active Substance: METHYLPREDNISOLONE
  60. LEVALBUTEROL [Concomitant]
     Active Substance: LEVALBUTEROL
  61. DESMOPRESSIN [Concomitant]
     Active Substance: DESMOPRESSIN
  62. INSULIN LISPRO [Concomitant]
     Active Substance: INSULIN LISPRO
  63. DEXTROSE [Concomitant]
     Active Substance: DEXTROSE
  64. POLYETHYLENE GLYCOL 3350 [Concomitant]
     Active Substance: POLYETHYLENE GLYCOL 3350
  65. FENTANYL [Concomitant]
     Active Substance: FENTANYL
  66. CHLORHEXIDINE [Concomitant]
     Active Substance: CHLORHEXIDINE
  67. TAMSULOSIN [Concomitant]
     Active Substance: TAMSULOSIN
  68. PIPERACILLIN AND TAZOBACTAM [Concomitant]
     Active Substance: PIPERACILLIN SODIUM\TAZOBACTAM SODIUM
  69. PANTOPRAZOLE [Concomitant]
     Active Substance: PANTOPRAZOLE
  70. CEFEPIME [Concomitant]
     Active Substance: CEFEPIME HYDROCHLORIDE
  71. ARTIFICIAL TEARS (POLYVINYL ALCOHOL) [Concomitant]
     Active Substance: POLYVINYL ALCOHOL
  72. PHENYLEPHRINE [Concomitant]
     Active Substance: PHENYLEPHRINE HYDROCHLORIDE
  73. MAALOX PLUS [ALUMINIUM HYDROXIDE;MAGNESIUM HYDROXIDE;SIMETICONE] [Concomitant]
  74. LIDOCAINE [Concomitant]
     Active Substance: LIDOCAINE
  75. ALBUMIN HUMAN [Concomitant]
     Active Substance: ALBUMIN HUMAN
  76. ROCURONIUM [Concomitant]
     Active Substance: ROCURONIUM BROMIDE
  77. ETOMIDATE [Concomitant]
     Active Substance: ETOMIDATE

REACTIONS (7)
  - Immune effector cell-associated neurotoxicity syndrome [Fatal]
  - Cytokine release syndrome [Fatal]
  - Hydrocephalus [Fatal]
  - Acute kidney injury [Fatal]
  - Posterior reversible encephalopathy syndrome [Fatal]
  - Visual impairment [Fatal]
  - Diplopia [Fatal]

NARRATIVE: CASE EVENT DATE: 20220216
